FAERS Safety Report 10036279 (Version 1)
Quarter: 2014Q1

REPORT INFORMATION
  Report Type: Spontaneous
  Country: US (occurrence: None)
  Receive Date: 20140306
  Receipt Date: 20140306
  Transmission Date: 20141002
  Serious: Yes (Other)
  Sender: FDA-Public Use
  Company Number: 163-21880-13093498

PATIENT
  Age: 73 Year
  Sex: Female
  Weight: 75 kg

DRUGS (9)
  1. REVLIMID [Suspect]
     Indication: PLASMA CELL MYELOMA
     Route: 048
     Dates: start: 200811
  2. CALTRATE + VITAMIN D [Concomitant]
  3. DEXAMETHASONE [Concomitant]
  4. ACYCLOVIR [Concomitant]
  5. VITAMIN D [Concomitant]
  6. GAS-X [Concomitant]
  7. PRILOSEC [Concomitant]
  8. BENADRYL (DIPHENHYDRAMINE HYDROCHLORIDE) [Concomitant]
  9. IMODIUM (LOPERAMIDE HYDROCHLORIDE) (LOPERAMIDE) [Concomitant]

REACTIONS (12)
  - Heart rate irregular [None]
  - Oropharyngeal pain [None]
  - Muscle spasms [None]
  - Sneezing [None]
  - Cough [None]
  - Gingival bleeding [None]
  - Skin wrinkling [None]
  - Diarrhoea [None]
  - Rhinorrhoea [None]
  - Nasal congestion [None]
  - Dry skin [None]
  - Blood phosphorus decreased [None]
